FAERS Safety Report 8054918 (Version 2)
Quarter: 2012Q4

REPORT INFORMATION
  Report Type: 
  Country: US (occurrence: US)
  Receive Date: 20110726
  Receipt Date: 20120829
  Transmission Date: 20130627
  Serious: Yes (Hospitalization)
  Sender: FDA-Public Use
  Company Number: US-GLAXOSMITHKLINE-A0923621A

PATIENT
  Age: 60 Year
  Sex: Male

DRUGS (1)
  1. ROSIGLITAZONE [Suspect]
     Indication: DIABETES MELLITUS
     Dosage: 6MG Per day
     Route: 048
     Dates: start: 200009, end: 200406

REACTIONS (5)
  - Myocardial infarction [Not Recovered/Not Resolved]
  - Atrial fibrillation [Unknown]
  - Cardiac failure congestive [Unknown]
  - Cardiac pacemaker insertion [Unknown]
  - Vascular graft [Unknown]
